FAERS Safety Report 4983716-8 (Version None)
Quarter: 2006Q1

REPORT INFORMATION
  Report Type: 
  Country: None (occurrence: None)
  Receive Date: 20060301
  Receipt Date: 20060106
  Transmission Date: 20060701
  Serious: No
  Sender: FDA-Public Use
  Company Number: S06-USA-00143-01

PATIENT
  Age: 48 Year
  Sex: Female

DRUGS (6)
  1. NAMENDA [Suspect]
     Indication: COGNITIVE DISORDER
     Dosage: 5 MG QD PO
     Route: 048
     Dates: start: 20060104
  2. ZOLOFT [Concomitant]
  3. STEROIDS (NOS) [Concomitant]
  4. VITAMINS [Concomitant]
  5. FLAX SEED OIL [Concomitant]
  6. CALCIUM GLUCONATE [Concomitant]

REACTIONS (1)
  - SOMNOLENCE [None]
